FAERS Safety Report 7649480-9 (Version None)
Quarter: 2011Q3

REPORT INFORMATION
  Report Type: 
  Country: None (occurrence: None)
  Receive Date: 20110727
  Receipt Date: 20110711
  Transmission Date: 20111222
  Serious: Yes (Other)
  Sender: FDA-Public Use
  Company Number: 2011MA008654

PATIENT
  Age: 52 Year
  Sex: Female

DRUGS (12)
  1. PROPRANOLOL HCL [Suspect]
     Indication: HYPERTENSION
     Dosage: 20 MG; TID
  2. OPIOID [Suspect]
     Indication: PAIN
  3. OPIOID [Suspect]
     Indication: SEDATION
  4. LIDOCAINE [Suspect]
     Indication: ANAESTHESIA
     Dosage: 40 ML
  5. DIAZEPAM [Suspect]
     Indication: SEDATION
     Dosage: IV
     Route: 042
  6. DIAZEPAM [Suspect]
     Indication: PAIN
     Dosage: IV
     Route: 042
  7. BARBITURATE [Suspect]
     Indication: PAIN
  8. BARBITURATE [Suspect]
     Indication: SEDATION
  9. EPINEPHRINE [Suspect]
     Indication: ANAESTHESIA
     Dosage: 0.2 MG
  10. NEUROLEPTIC [Suspect]
     Indication: SEDATION
  11. NEUROLEPTIC [Suspect]
     Indication: PAIN
  12. HYDROXYZINE HCL [Suspect]

REACTIONS (3)
  - HEART RATE DECREASED [None]
  - DRUG INTERACTION [None]
  - HYPERTENSION [None]
